FAERS Safety Report 4974476-5 (Version None)
Quarter: 2006Q1

REPORT INFORMATION
  Report Type: 
  Country: None (occurrence: None)
  Receive Date: 20060227
  Receipt Date: 20051108
  Transmission Date: 20060701
  Serious: Yes (Other)
  Sender: FDA-Public Use
  Company Number: PHEH2005US12133

PATIENT
  Age: 82 Year
  Sex: 0

DRUGS (2)
  1. ENABLEX [Suspect]
     Indication: HYPERTONIC BLADDER
     Dosage: 7.5 MG, QD, ORAL
     Route: 048
     Dates: start: 20050912, end: 20051018
  2. HYDROCHLOROTHIAZIDE [Concomitant]

REACTIONS (2)
  - THERAPEUTIC PROCEDURE [None]
  - URINARY RETENTION [None]
